FAERS Safety Report 23494290 (Version 1)
Quarter: 2024Q1

REPORT INFORMATION
  Report Type: Spontaneous
  Country: US (occurrence: US)
  Receive Date: 20240207
  Receipt Date: 20240207
  Transmission Date: 20240409
  Serious: Yes (Hospitalization, Other)
  Sender: FDA-Public Use
  Company Number: US-PFIZER INC-202400033979

PATIENT
  Age: 85 Year
  Sex: Female
  Weight: 45.81 kg

DRUGS (2)
  1. COLESTID [Suspect]
     Active Substance: COLESTIPOL HYDROCHLORIDE
     Dosage: ONE TABLET 1000MG BY MOUTH TWO TIMES DAILY
     Route: 048
  2. COLESTIPOL HYDROCHLORIDE [Suspect]
     Active Substance: COLESTIPOL HYDROCHLORIDE
     Dosage: ONE TABLET 1000MG BY MOUTH TWO TIMES DAILY
     Route: 048

REACTIONS (10)
  - Dysphagia [Not Recovered/Not Resolved]
  - Blood glucose decreased [Unknown]
  - Headache [Unknown]
  - Abdominal pain upper [Unknown]
  - Tremor [Unknown]
  - Skin discolouration [Unknown]
  - Mood altered [Unknown]
  - General physical health deterioration [Unknown]
  - Off label use [Unknown]
  - Wrong technique in product usage process [Unknown]

NARRATIVE: CASE EVENT DATE: 20240130
